FAERS Safety Report 6974959-2 (Version None)
Quarter: 2010Q3

REPORT INFORMATION
  Report Type: 
  Country: None (occurrence: None)
  Receive Date: 20100909
  Receipt Date: 20090123
  Transmission Date: 20110219
  Serious: No
  Sender: FDA-Public Use
  Company Number: US-WYE-H07876709

PATIENT

DRUGS (2)
  1. PRISTIQ [Suspect]
     Dosage: STOPPED FOR 4 DAYS, THEN TITRATED TO 100 MG
     Route: 048
  2. PRISTIQ [Suspect]
     Dosage: TITRATED TO 200 MG
     Route: 048

REACTIONS (4)
  - EXTRAPYRAMIDAL DISORDER [None]
  - INSOMNIA [None]
  - IRRITABILITY [None]
  - TREMOR [None]
